FAERS Safety Report 8062540-6 (Version None)
Quarter: 2012Q1

REPORT INFORMATION
  Report Type: 
  Country: None (occurrence: None)
  Receive Date: 20120117
  Receipt Date: 20120111
  Transmission Date: 20120608
  Serious: Yes (Hospitalization, Other)
  Sender: FDA-Public Use
  Company Number: 2011SP005795

PATIENT
  Age: 38 Year
  Sex: Female
  Weight: 77.1115 kg

DRUGS (1)
  1. NUVARING [Suspect]
     Indication: CONTRACEPTION
     Dates: start: 20070101, end: 20090301

REACTIONS (13)
  - PNEUMONIA [None]
  - INTERNATIONAL NORMALISED RATIO INCREASED [None]
  - SYNOVIAL CYST [None]
  - ATELECTASIS [None]
  - FALL [None]
  - PULMONARY INFARCTION [None]
  - BONE PAIN [None]
  - LIGAMENT SPRAIN [None]
  - CONTUSION [None]
  - BACK PAIN [None]
  - COAGULATION FACTOR VIII LEVEL INCREASED [None]
  - PULMONARY EMBOLISM [None]
  - JOINT INJURY [None]
